FAERS Safety Report 9384275 (Version 1)
Quarter: 2013Q3

REPORT INFORMATION
  Report Type: Spontaneous
  Country: US (occurrence: None)
  Receive Date: 20130702
  Receipt Date: 20130702
  Transmission Date: 20140515
  Serious: Yes (Other)
  Sender: FDA-Public Use
  Company Number: None

PATIENT
  Age: 79 Year
  Sex: Male

DRUGS (2)
  1. CILOSTAZOL [Suspect]
  2. OPC-13013 [Suspect]
     Dates: start: 20090521, end: 20090826

REACTIONS (2)
  - Ventricular arrhythmia [None]
  - Extrasystoles [None]
